FAERS Safety Report 9447573 (Version 2)
Quarter: 2013Q3

REPORT INFORMATION
  Report Type: Spontaneous
  Country: DE (occurrence: DE)
  Receive Date: 20130808
  Receipt Date: 20130911
  Transmission Date: 20140515
  Serious: Yes (Death)
  Sender: FDA-Public Use
  Company Number: DE-JNJFOC-20130717894

PATIENT
  Age: 46 Year
  Sex: Male

DRUGS (1)
  1. FENTANYL [Suspect]
     Indication: BACK PAIN
     Route: 062
     Dates: start: 201102

REACTIONS (1)
  - Coma [Fatal]
